FAERS Safety Report 6674876-1 (Version None)
Quarter: 2010Q2

REPORT INFORMATION
  Report Type: 
  Country: None (occurrence: None)
  Receive Date: 20100409
  Receipt Date: 20100327
  Transmission Date: 20101027
  Serious: Yes (Other)
  Sender: FDA-Public Use
  Company Number: ZA-PFIZER INC-2010039621

PATIENT
  Age: 72 Year
  Sex: Female

DRUGS (2)
  1. LYRICA [Suspect]
     Indication: RESTLESS LEGS SYNDROME
     Dosage: 75 MG, 1X/DAY, AT NIGHT
     Route: 048
  2. LAMICTIN [Concomitant]
     Indication: RESTLESS LEGS SYNDROME
     Dosage: 12.5 MG
     Route: 048

REACTIONS (1)
  - VASCULITIS [None]
